FAERS Safety Report 17651525 (Version 1)
Quarter: 2020Q2

REPORT INFORMATION
  Report Type: Spontaneous
  Country: TR (occurrence: TR)
  Receive Date: 20200409
  Receipt Date: 20200409
  Transmission Date: 20200713
  Serious: Yes (Hospitalization, Other)
  Sender: FDA-Public Use
  Company Number: TR-AKRON, INC.-2082572

PATIENT
  Age: 7 Year
  Sex: Male

DRUGS (1)
  1. CYCLOPENTOLATE HYDROCHLORIDE. [Suspect]
     Active Substance: CYCLOPENTOLATE HYDROCHLORIDE
     Route: 047

REACTIONS (2)
  - Anaesthetic complication neurological [Recovered/Resolved]
  - Overdose [Recovered/Resolved]
